FAERS Safety Report 8993303 (Version 2)
Quarter: 2013Q4

REPORT INFORMATION
  Report Type: Spontaneous
  Country: US (occurrence: US)
  Receive Date: 20130102
  Receipt Date: 20131101
  Transmission Date: 20140711
  Serious: No
  Sender: FDA-Public Use
  Company Number: US-PFIZER INC-2012332586

PATIENT
  Sex: Female

DRUGS (2)
  1. GEODON [Suspect]
     Dosage: UNK
  2. GEODON [Suspect]
     Dosage: 60 MG, UNK

REACTIONS (2)
  - Weight increased [Unknown]
  - Weight decreased [Unknown]
